FAERS Safety Report 5908406-6 (Version None)
Quarter: 2008Q3

REPORT INFORMATION
  Report Type: 
  Country: None (occurrence: None)
  Receive Date: 20080930
  Receipt Date: 20080916
  Transmission Date: 20090109
  Serious: Yes (Hospitalization)
  Sender: FDA-Public Use
  Company Number: 200809AGG00832

PATIENT
  Age: 68 Year
  Sex: Female

DRUGS (2)
  1. AGGRASTAT [Suspect]
     Indication: ANGINA UNSTABLE
     Dosage: INTRAVENOUS
     Route: 042
     Dates: start: 20001111
  2. NITROGLYCERIN [Suspect]
     Indication: ANGINA UNSTABLE
     Dosage: INTRAVENOUS
     Route: 042

REACTIONS (3)
  - NAUSEA [None]
  - PLATELET COUNT DECREASED [None]
  - VOMITING [None]
